FAERS Safety Report 14741289 (Version 1)
Quarter: 2018Q2

REPORT INFORMATION
  Report Type: Spontaneous
  Country: US (occurrence: US)
  Receive Date: 20180404
  Receipt Date: 20180404
  Transmission Date: 20180711
  Serious: Yes (Death)
  Sender: FDA-Public Use
  Company Number: None

PATIENT
  Age: 63 Year
  Sex: Male
  Weight: 84 kg

DRUGS (2)
  1. PROFILNINE [Suspect]
     Active Substance: FACTOR IX COMPLEX
     Indication: HAEMATOMA
     Dosage: ?          OTHER FREQUENCY:1X ONLY;?
     Route: 042
     Dates: start: 20180403, end: 20180403
  2. PROFILNINE [Suspect]
     Active Substance: FACTOR IX COMPLEX
     Indication: HAEMATOMA
     Dosage: ?          OTHER FREQUENCY:1X ONLY;?
     Route: 042
     Dates: start: 20180403, end: 20180403

REACTIONS (2)
  - Cardio-respiratory arrest [None]
  - International normalised ratio increased [None]

NARRATIVE: CASE EVENT DATE: 20180403
